FAERS Safety Report 4570686-X (Version None)
Quarter: 2005Q1

REPORT INFORMATION
  Report Type: 
  Country: None (occurrence: None)
  Receive Date: 20050131
  Receipt Date: 20041227
  Transmission Date: 20050727
  Serious: Yes (Other)
  Sender: FDA-Public Use
  Company Number: 2004BI002255

PATIENT
  Sex: Female
  Weight: 56.6996 kg

DRUGS (2)
  1. AVONEX [Suspect]
     Indication: MULTIPLE SCLEROSIS
     Dosage: IM
     Route: 030
     Dates: start: 20010917, end: 20020717
  2. COPAXONE [Concomitant]

REACTIONS (7)
  - BLEPHAROSPASM [None]
  - COGNITIVE DISORDER [None]
  - DEMENTIA [None]
  - DYSGRAPHIA [None]
  - MEIGS' SYNDROME [None]
  - SPEECH DISORDER [None]
  - STRABISMUS [None]
